FAERS Safety Report 23202043 (Version 1)
Quarter: 2023Q4

REPORT INFORMATION
  Report Type: Spontaneous
  Country: US (occurrence: None)
  Receive Date: 20231118
  Receipt Date: 20231118
  Transmission Date: 20240110
  Serious: Yes (Death, Hospitalization)
  Sender: FDA-Public Use
  Company Number: None

PATIENT
  Age: 83 Year
  Sex: Male
  Weight: 59 kg

DRUGS (3)
  1. FLUOROURACIL [Suspect]
     Active Substance: FLUOROURACIL
     Dates: end: 20230424
  2. IRINOTECAN [Suspect]
     Active Substance: IRINOTECAN
     Dates: end: 20230424
  3. LEUCOVORIN CALCIUM [Suspect]
     Active Substance: LEUCOVORIN CALCIUM
     Dates: end: 20230424

REACTIONS (10)
  - Sepsis [None]
  - Lethargy [None]
  - Confusional state [None]
  - Diarrhoea [None]
  - Hypotension [None]
  - Pancytopenia [None]
  - Atrial fibrillation [None]
  - Febrile neutropenia [None]
  - Respiratory failure [None]
  - Therapy cessation [None]

NARRATIVE: CASE EVENT DATE: 20230504
